FAERS Safety Report 8600871-9 (Version None)
Quarter: 2012Q3

REPORT INFORMATION
  Report Type: 
  Country: None (occurrence: None)
  Receive Date: 20120817
  Receipt Date: 20100603
  Transmission Date: 20120928
  Serious: Yes (Other)
  Sender: FDA-Public Use
  Company Number: CO-PFIZER INC-2012198681

PATIENT
  Age: 83 Year
  Sex: Male

DRUGS (3)
  1. LIPITOR [Suspect]
     Indication: DYSLIPIDAEMIA
     Dosage: 10 MG EVERY 24 HOURS
  2. METOPROLOL TARTRATE [Concomitant]
     Dosage: 50 MG EVERY 12 HOURS
  3. ASPIRIN [Concomitant]
     Dosage: 100 MG EVERY 24 HOURS

REACTIONS (4)
  - PERIPHERAL VASCULAR DISORDER [None]
  - ANGINA PECTORIS [None]
  - CORONARY ARTERY STENOSIS [None]
  - CARDIOVASCULAR DISORDER [None]
